FAERS Safety Report 7271222-X (Version None)
Quarter: 2011Q1

REPORT INFORMATION
  Report Type: 
  Country: None (occurrence: None)
  Receive Date: 20110202
  Receipt Date: 20110127
  Transmission Date: 20110831
  Serious: Yes (Hospitalization)
  Sender: FDA-Public Use
  Company Number: GB-GILEAD-2011-0035783

PATIENT
  Sex: Female

DRUGS (2)
  1. KALETRA [Concomitant]
     Indication: ANTIRETROVIRAL THERAPY
  2. TRUVADA [Suspect]
     Indication: ANTIRETROVIRAL THERAPY

REACTIONS (1)
  - OSTEONECROSIS [None]
